FAERS Safety Report 4890473-2 (Version None)
Quarter: 2005Q4

REPORT INFORMATION
  Report Type: 
  Country: None (occurrence: None)
  Receive Date: 20051216
  Receipt Date: 20050829
  Transmission Date: 20060501
  Serious: Yes (Other)
  Sender: FDA-Public Use
  Company Number: BDI-007482

PATIENT
  Sex: Female
  Weight: 64 kg

DRUGS (1)
  1. MULTIHANCE [Suspect]
     Indication: NUCLEAR MAGNETIC RESONANCE IMAGING
     Dosage: 11  ML ONCE IV
     Route: 042
     Dates: start: 20050801, end: 20050801

REACTIONS (4)
  - EYE SWELLING [None]
  - HEADACHE [None]
  - NAUSEA [None]
  - VOMITING [None]
